FAERS Safety Report 23473000 (Version 1)
Quarter: 2024Q1

REPORT INFORMATION
  Report Type: Spontaneous
  Country: US (occurrence: US)
  Receive Date: 20240203
  Receipt Date: 20240203
  Transmission Date: 20240410
  Serious: No
  Sender: FDA-Public Use
  Company Number: US-ABBVIE-5611103

PATIENT

DRUGS (2)
  1. UBRELVY [Interacting]
     Active Substance: UBROGEPANT
     Indication: Migraine
     Route: 048
  2. CURCUMIN [Interacting]
     Active Substance: CURCUMIN
     Indication: Product used for unknown indication
     Route: 065

REACTIONS (2)
  - Drug interaction [Unknown]
  - Adverse drug reaction [Unknown]
